FAERS Safety Report 12560843 (Version 1)
Quarter: 2016Q3

REPORT INFORMATION
  Report Type: Spontaneous
  Country: US (occurrence: None)
  Receive Date: 20160714
  Receipt Date: 20160714
  Transmission Date: 20161109
  Serious: Yes (Other)
  Sender: FDA-Public Use
  Company Number: None

PATIENT
  Age: 87 Year
  Sex: Female

DRUGS (1)
  1. LATANOPROST, 0.005% GREENSTONE [Suspect]
     Active Substance: LATANOPROST
     Indication: GLAUCOMA
     Route: 047
     Dates: start: 20160712, end: 20160712

REACTIONS (1)
  - Burning sensation [None]

NARRATIVE: CASE EVENT DATE: 20160712
